FAERS Safety Report 9224171 (Version 1)
Quarter: 2013Q2

REPORT INFORMATION
  Report Type: Spontaneous
  Country: US (occurrence: US)
  Receive Date: 20130411
  Receipt Date: 20130411
  Transmission Date: 20140414
  Serious: No
  Sender: FDA-Public Use
  Company Number: US-PFIZER INC-2013111594

PATIENT
  Age: 33 Year
  Sex: Female
  Weight: 99.32 kg

DRUGS (1)
  1. LEVOXYL [Suspect]
     Dosage: UNK
     Dates: start: 1999

REACTIONS (1)
  - Weight increased [Unknown]
